FAERS Safety Report 8175414-7 (Version None)
Quarter: 2012Q1

REPORT INFORMATION
  Report Type: 
  Country: None (occurrence: None)
  Receive Date: 20120229
  Receipt Date: 20120223
  Transmission Date: 20120608
  Serious: Yes (Other)
  Sender: FDA-Public Use
  Company Number: FR-ABBOTT-12P-056-0908333-00

PATIENT
  Sex: Male

DRUGS (2)
  1. HUMIRA [Suspect]
     Indication: ANKYLOSING SPONDYLITIS
     Route: 058
     Dates: start: 20120211
  2. NSAID NOS [Concomitant]
     Indication: ANKYLOSING SPONDYLITIS

REACTIONS (6)
  - DIZZINESS [None]
  - MALAISE [None]
  - VERTIGO [None]
  - NASOPHARYNGITIS [None]
  - PRESYNCOPE [None]
  - LOSS OF CONSCIOUSNESS [None]
